FAERS Safety Report 7406472-2 (Version None)
Quarter: 2011Q2

REPORT INFORMATION
  Report Type: 
  Country: None (occurrence: None)
  Receive Date: 20110406
  Receipt Date: 20110406
  Transmission Date: 20111010
  Serious: Yes (Other)
  Sender: FDA-Public Use
  Company Number: None

PATIENT
  Age: 55 Year
  Sex: Female
  Weight: 96.6162 kg

DRUGS (1)
  1. RESTASIS [Suspect]
     Indication: DRY EYE
     Dosage: ONE DROP TWICE A DAY OPTHALMIC
     Route: 047
     Dates: start: 20110325, end: 20110329

REACTIONS (3)
  - APPLICATION SITE PAIN [None]
  - EYE IRRITATION [None]
  - ABNORMAL SENSATION IN EYE [None]
